FAERS Safety Report 9453230 (Version 2)
Quarter: 2014Q3

REPORT INFORMATION
  Report Type: Spontaneous
  Country: US (occurrence: US)
  Receive Date: 20130812
  Receipt Date: 20140915
  Transmission Date: 20150326
  Serious: Yes (Hospitalization)
  Sender: FDA-Public Use
  Company Number: US-PFIZER INC-2013233099

PATIENT
  Age: 65 Year
  Sex: Female
  Weight: 52.15 kg

DRUGS (3)
  1. NORVASC [Concomitant]
     Active Substance: AMLODIPINE BESYLATE
     Dosage: UNK
  2. MINIPRESS [Suspect]
     Active Substance: PRAZOSIN HYDROCHLORIDE
     Indication: RAYNAUD^S PHENOMENON
     Dosage: 1 MG, 2X/DAY
     Route: 048
  3. PRAZOSIN HCL [Suspect]
     Active Substance: PRAZOSIN HYDROCHLORIDE
     Indication: RAYNAUD^S PHENOMENON
     Dosage: 1 MG, 2X/DAY
     Route: 048
     Dates: start: 2012

REACTIONS (4)
  - Hip fracture [Recovered/Resolved]
  - Fall [Unknown]
  - Injury [Unknown]
  - Drug ineffective for unapproved indication [Unknown]

NARRATIVE: CASE EVENT DATE: 2012
